FAERS Safety Report 17958003 (Version 4)
Quarter: 2020Q3

REPORT INFORMATION
  Report Type: Spontaneous
  Country: US (occurrence: US)
  Receive Date: 20200629
  Receipt Date: 20200908
  Transmission Date: 20201103
  Serious: Yes (Hospitalization)
  Sender: FDA-Public Use
  Company Number: US-PFIZER INC-2020247282

PATIENT
  Age: 91 Year
  Sex: Female
  Weight: 64 kg

DRUGS (2)
  1. LYRICA [Suspect]
     Active Substance: PREGABALIN
     Dosage: 100 MG, 3X/DAY
     Route: 048
     Dates: end: 202006
  2. LYRICA [Suspect]
     Active Substance: PREGABALIN
     Dosage: 100 G, 3X/DAY
     Route: 048

REACTIONS (3)
  - Wrong strength [Unknown]
  - Amnesia [Unknown]
  - Fall [Unknown]

NARRATIVE: CASE EVENT DATE: 202006
